FAERS Safety Report 6817069-7 (Version None)
Quarter: 2010Q3

REPORT INFORMATION
  Report Type: 
  Country: None (occurrence: None)
  Receive Date: 20100706
  Receipt Date: 20100624
  Transmission Date: 20110219
  Serious: Yes (Other)
  Sender: FDA-Public Use
  Company Number: FR-WYE-G06317110

PATIENT
  Sex: Female

DRUGS (2)
  1. EFFEXOR XR [Suspect]
     Route: 064
  2. XANAX [Suspect]
     Route: 064

REACTIONS (6)
  - BREECH PRESENTATION [None]
  - DIARRHOEA NEONATAL [None]
  - DRUG WITHDRAWAL SYNDROME NEONATAL [None]
  - NAUSEA [None]
  - PREMATURE BABY [None]
  - VOMITING NEONATAL [None]
